FAERS Safety Report 8612094-8 (Version None)
Quarter: 2012Q3

REPORT INFORMATION
  Report Type: 
  Country: None (occurrence: None)
  Receive Date: 20120822
  Receipt Date: 20120820
  Transmission Date: 20120928
  Serious: Yes (Life-Threatening, Hospitalization)
  Sender: FDA-Public Use
  Company Number: US-ROXANE LABORATORIES, INC.-2012-RO-00887RO

PATIENT
  Age: 56 Year
  Sex: Female
  Weight: 81 kg

DRUGS (42)
  1. HUMIRA [Suspect]
     Indication: UVEITIS
     Route: 058
     Dates: start: 20110914, end: 20120208
  2. MYCOPHENOLATE MEFETIL [Concomitant]
     Indication: UVEITIS
     Dosage: 2000 MG
     Route: 048
     Dates: start: 20101024, end: 20110601
  3. PROMETHAZINE [Concomitant]
     Indication: NAUSEA
     Dates: start: 20090101
  4. SERTRALINE HYDROCHLORIDE [Concomitant]
     Indication: DEPRESSION
     Dosage: 25 MG
     Dates: start: 20080101
  5. VICODIN [Concomitant]
     Indication: HEADACHE
     Dates: start: 20111020
  6. PREDNISONE TAB [Suspect]
     Dosage: 40 MG
     Route: 048
     Dates: start: 20111005, end: 20111011
  7. PREDNISONE TAB [Suspect]
     Dosage: 15 NR
     Route: 048
     Dates: start: 20111026, end: 20111101
  8. PREDNISONE TAB [Suspect]
     Dosage: 4 MG
     Route: 048
     Dates: start: 20111201, end: 20111207
  9. LISINOPRIL [Concomitant]
     Indication: HYPERTENSION
     Dosage: 30 MG
     Dates: start: 20030101
  10. ROSUVASTATIN [Concomitant]
     Indication: HYPERLIPIDAEMIA
     Dosage: 40 MG
     Dates: start: 20100101
  11. LORAZEPAM [Concomitant]
     Indication: ANXIETY
     Dates: start: 20111013
  12. AMLODIPINE MALEATE [Concomitant]
     Dosage: 5 MG
     Dates: start: 20120118, end: 20120202
  13. PREDNISONE TAB [Suspect]
     Dosage: 50 MG
     Route: 048
     Dates: start: 20110928, end: 20111004
  14. CALCIUM WITH D [Concomitant]
     Indication: MINERAL SUPPLEMENTATION
     Dates: start: 20050101
  15. CEFIXIME [Concomitant]
     Indication: BACK PAIN
     Dates: start: 20040101
  16. FUROSEMIDE [Concomitant]
     Indication: HYPERTENSION
  17. TRAMADOL HCL [Concomitant]
     Indication: ARTHRALGIA
     Dates: start: 20060101
  18. CYCLOBENZAPRINE HCL [Concomitant]
     Indication: BACK PAIN
     Dates: start: 20040101
  19. PANTOPRAZOLE SODIUM SESQUIHYDRATE [Concomitant]
     Indication: ABDOMINAL DISCOMFORT
     Dosage: 80 MG
     Dates: start: 20111208
  20. PREDNISONE TAB [Suspect]
     Dosage: 20 MG
     Route: 048
     Dates: start: 20111019, end: 20111025
  21. PREDNISONE TAB [Suspect]
     Dosage: 3 MG
     Route: 048
     Dates: start: 20111208, end: 20111214
  22. PREDNISONE TAB [Suspect]
     Dosage: 2 MG
     Route: 048
     Dates: start: 20111215, end: 20111221
  23. MYCOPHENOLATE MEFETIL [Concomitant]
     Dates: start: 20080101
  24. PREDNISONE TAB [Suspect]
     Dosage: 12.5 MG
     Route: 048
     Dates: start: 20111102, end: 20111108
  25. PREDNISONE TAB [Suspect]
     Indication: UVEITIS
     Dosage: 60 MG
     Route: 048
     Dates: start: 20110914, end: 20110927
  26. PREDNISONE TAB [Suspect]
     Dosage: 30 MG
     Route: 048
     Dates: start: 20111012, end: 20111018
  27. PREDNISONE TAB [Suspect]
     Dosage: 10 MG
     Route: 048
     Dates: start: 20111109, end: 20111116
  28. PREDNISONE TAB [Suspect]
     Dosage: 7.5 MG
     Route: 048
     Dates: start: 20111117, end: 20111123
  29. PREDNISONE TAB [Suspect]
     Dosage: 5 MG
     Route: 048
     Dates: start: 20111124, end: 20111130
  30. PREDNISONE TAB [Suspect]
     Dosage: 1 MG
     Route: 048
     Dates: start: 20111222, end: 20111228
  31. KETOROLAC TROMETHAMINE [Concomitant]
     Indication: UVEITIS
     Route: 061
     Dates: start: 20081015
  32. LORATADINE [Concomitant]
     Indication: HYPERSENSITIVITY
     Dosage: 10 MG
     Dates: start: 20030101
  33. ESTRADIOL [Concomitant]
     Indication: OESTROGEN REPLACEMENT THERAPY
     Dates: start: 20090101
  34. FOLIC ACID [Concomitant]
     Indication: VITAMIN SUPPLEMENTATION
     Dosage: 1 MG
     Dates: start: 20040101
  35. FUROSEMIDE [Concomitant]
     Indication: DIURETIC THERAPY
     Dosage: 20 MG
     Dates: start: 20050101
  36. METOPROLOL TARTRATE [Concomitant]
     Indication: BLOOD PRESSURE
     Dosage: 200 MG
     Dates: start: 20111108
  37. AMLODIPINE MALEATE [Concomitant]
     Indication: HYPERTENSION
     Dosage: 10 MG
     Dates: start: 20111209, end: 20120117
  38. HUMIRA [Suspect]
     Route: 058
     Dates: start: 20120229
  39. MYCOPHENOLATE MEFETIL [Concomitant]
     Dosage: 500 MG
     Dates: start: 20080101
  40. GABAPENTIN [Concomitant]
     Indication: ARTHRALGIA
     Dosage: 1800 MG
     Dates: start: 20100101, end: 20120509
  41. DICLOFENAC SODIUM [Concomitant]
     Indication: ARTHRALGIA
     Dosage: 2 MG
     Dates: start: 20100101
  42. BUPROPION HYDROCHLORIDE [Concomitant]
     Indication: DEPRESSION
     Dosage: 200 MG
     Dates: start: 20030101

REACTIONS (2)
  - GASTROENTERITIS VIRAL [None]
  - FLUID OVERLOAD [None]
